FAERS Safety Report 10062338 (Version 1)
Quarter: 2014Q2

REPORT INFORMATION
  Report Type: Spontaneous
  Country: US (occurrence: US)
  Receive Date: 20140407
  Receipt Date: 20140407
  Transmission Date: 20141212
  Serious: No
  Sender: FDA-Public Use
  Company Number: US-GLAXOSMITHKLINE-A1064113A

PATIENT
  Sex: Female

DRUGS (2)
  1. BENLYSTA [Suspect]
     Route: 042
     Dates: start: 20140227
  2. NO CONCURRENT MEDICATION [Concomitant]

REACTIONS (17)
  - Cough [Not Recovered/Not Resolved]
  - Nausea [Unknown]
  - Vomiting [Unknown]
  - Fatigue [Unknown]
  - Fatigue [Unknown]
  - Chest pain [Unknown]
  - Dyspnoea [Unknown]
  - Abdominal pain upper [Unknown]
  - Eructation [Unknown]
  - Eructation [Unknown]
  - Burning sensation [Unknown]
  - Diarrhoea [Unknown]
  - Headache [Unknown]
  - Gastrooesophageal reflux disease [Unknown]
  - Hyperchlorhydria [Unknown]
  - Malaise [Unknown]
  - Feeling abnormal [Unknown]
